FAERS Safety Report 8017523-9 (Version None)
Quarter: 2011Q4

REPORT INFORMATION
  Report Type: 
  Country: None (occurrence: None)
  Receive Date: 20111228
  Receipt Date: 20111228
  Transmission Date: 20120403
  Serious: Yes (Other)
  Sender: FDA-Public Use
  Company Number: None

PATIENT
  Age: 45 Year
  Sex: Female
  Weight: 87.0906 kg

DRUGS (1)
  1. SYNVISC ONE INJECTION [Suspect]
     Indication: OSTEOARTHRITIS
     Dosage: 8MG
     Dates: start: 20111105

REACTIONS (3)
  - DISCOMFORT [None]
  - PAIN [None]
  - JOINT SWELLING [None]
